FAERS Safety Report 7619061-1 (Version None)
Quarter: 2011Q3

REPORT INFORMATION
  Report Type: 
  Country: None (occurrence: None)
  Receive Date: 20110718
  Receipt Date: 20110711
  Transmission Date: 20111222
  Serious: Yes (Other)
  Sender: FDA-Public Use
  Company Number: US-ABBOTT-11P-163-0838663-00

PATIENT
  Sex: Female
  Weight: 48.578 kg

DRUGS (6)
  1. HUMIRA [Suspect]
     Indication: RHEUMATOID ARTHRITIS
     Route: 058
     Dates: start: 20060201, end: 20070101
  2. PERCOCET [Concomitant]
     Indication: ARTHRALGIA
     Route: 048
  3. TYLENOL W/ CODEINE NO. 3 [Concomitant]
     Indication: ARTHRALGIA
     Route: 048
  4. HUMIRA [Suspect]
     Route: 058
     Dates: start: 20080101, end: 20080101
  5. HUMIRA [Suspect]
     Route: 058
     Dates: start: 20100301, end: 20101201
  6. HUMIRA [Suspect]
     Dates: start: 20110501

REACTIONS (16)
  - PSORIASIS [None]
  - HEADACHE [None]
  - ERYTHEMA [None]
  - PRURITUS [None]
  - HIP ARTHROPLASTY [None]
  - ARTHROSCOPY [None]
  - DYSPNOEA [None]
  - OEDEMA PERIPHERAL [None]
  - HYPERTENSION [None]
  - CHONDROPATHY [None]
  - OSTEONECROSIS [None]
  - RHEUMATOID ARTHRITIS [None]
  - ABORTION SPONTANEOUS [None]
  - RASH MACULAR [None]
  - SINUSITIS [None]
  - ARTHRALGIA [None]
